FAERS Safety Report 7533721-2 (Version None)
Quarter: 2011Q2

REPORT INFORMATION
  Report Type: 
  Country: None (occurrence: None)
  Receive Date: 20110608
  Receipt Date: 20060424
  Transmission Date: 20111010
  Serious: Yes (Hospitalization)
  Sender: FDA-Public Use
  Company Number: PHNR2005AU01751

PATIENT
  Sex: Male

DRUGS (5)
  1. AMITRIPTYLINE HYDROCHLORIDE [Concomitant]
     Dosage: 25 MG, QD
  2. CLOZAPINE [Suspect]
     Indication: SCHIZOPHRENIA
     Dosage: 0 - 775 MG, QD
     Dates: start: 20010716, end: 20051224
  3. CLOZAPINE [Suspect]
     Dosage: 12.5 - 350 MG, QD
     Dates: start: 20051230
  4. SIMVASTATIN [Concomitant]
     Dosage: 40 MG, QD
  5. CITALOPRAM HYDROBROMIDE [Concomitant]
     Dosage: 20 MG, QD

REACTIONS (16)
  - LYMPHOCYTE COUNT DECREASED [None]
  - DIARRHOEA [None]
  - HAEMATOCRIT DECREASED [None]
  - BLOOD CALCIUM DECREASED [None]
  - BACTERIAL SEPSIS [None]
  - BLOOD DISORDER [None]
  - BLOOD CREATINE PHOSPHOKINASE INCREASED [None]
  - RENAL FAILURE ACUTE [None]
  - WHITE BLOOD CELL COUNT DECREASED [None]
  - RED BLOOD CELL COUNT DECREASED [None]
  - LYMPHOCYTE MORPHOLOGY ABNORMAL [None]
  - HAEMOGLOBIN DECREASED [None]
  - CAMPYLOBACTER INFECTION [None]
  - NEUTROPHIL COUNT DECREASED [None]
  - DEHYDRATION [None]
  - BLOOD ALBUMIN DECREASED [None]
